FAERS Safety Report 10800785 (Version 2)
Quarter: 2015Q1

REPORT INFORMATION
  Report Type: Spontaneous
  Country: US (occurrence: US)
  Receive Date: 20150216
  Receipt Date: 20150216
  Transmission Date: 20150721
  Serious: No
  Sender: FDA-Public Use
  Company Number: US-ALLERGAN-1425210US

PATIENT
  Sex: Female

DRUGS (1)
  1. RESTASIS [Suspect]
     Active Substance: CYCLOSPORINE
     Indication: PRODUCT USED FOR UNKNOWN INDICATION
     Dosage: UNK
     Route: 047

REACTIONS (5)
  - Dry mouth [Unknown]
  - Dry eye [Unknown]
  - Autoimmune disorder [Not Recovered/Not Resolved]
  - Activities of daily living impaired [Unknown]
  - Sjogren^s syndrome [Not Recovered/Not Resolved]
